FAERS Safety Report 17761387 (Version 1)
Quarter: 2020Q2

REPORT INFORMATION
  Report Type: Spontaneous
  Country: US (occurrence: US)
  Receive Date: 20200508
  Receipt Date: 20200508
  Transmission Date: 20200714
  Serious: No
  Sender: FDA-Public Use
  Company Number: US-BAUSCH-BL-2020-013027

PATIENT
  Age: 67 Year
  Sex: Male
  Weight: 113.5 kg

DRUGS (1)
  1. LATANOPROST OPHTHALMIC SOLUTION 0.005% [Suspect]
     Active Substance: LATANOPROST
     Indication: GLAUCOMA
     Dosage: ONE DROP IN EACH EYE ONCE NIGHTLY
     Route: 047
     Dates: start: 2005

REACTIONS (3)
  - Sinus disorder [Not Recovered/Not Resolved]
  - Photophobia [Not Recovered/Not Resolved]
  - Larynx irritation [Not Recovered/Not Resolved]

NARRATIVE: CASE EVENT DATE: 2019
